FAERS Safety Report 9328916 (Version 1)
Quarter: 2013Q2

REPORT INFORMATION
  Report Type: Spontaneous
  Country: US (occurrence: US)
  Receive Date: 20130604
  Receipt Date: 20130604
  Transmission Date: 20140414
  Serious: No
  Sender: FDA-Public Use
  Company Number: US-SANOFI-AVENTIS-2013SA039276

PATIENT
  Age: 71 Year
  Sex: Male

DRUGS (3)
  1. LANTUS SOLOSTAR [Suspect]
     Indication: DIABETES MELLITUS
     Dosage: DOASGE-6-10 U
     Route: 051
  2. SOLOSTAR [Suspect]
     Indication: DIABETES MELLITUS
  3. GLYBURIDE [Suspect]

REACTIONS (4)
  - Thinking abnormal [Unknown]
  - Dizziness [Unknown]
  - Lethargy [Unknown]
  - Blood glucose increased [Unknown]
